FAERS Safety Report 9445810 (Version 2)
Quarter: 2014Q1

REPORT INFORMATION
  Report Type: Spontaneous
  Country: US (occurrence: US)
  Receive Date: 20130807
  Receipt Date: 20140117
  Transmission Date: 20141002
  Serious: Yes (Death, Hospitalization)
  Sender: FDA-Public Use
  Company Number: US-B.I. PHARMACEUTICALS,INC./RIDGEFIELD-2013-BI-23872BP

PATIENT
  Age: 79 Year
  Sex: Female
  Weight: 88.9 kg

DRUGS (4)
  1. PRADAXA [Suspect]
     Indication: ATRIAL FIBRILLATION
     Dates: start: 20110830, end: 20120807
  2. BABY ASPIRIN [Concomitant]
  3. PEPTOBISMOL [Concomitant]
  4. TYLENOL PM [Concomitant]

REACTIONS (5)
  - Urosepsis [Fatal]
  - Gastrointestinal haemorrhage [Unknown]
  - Anaemia [Unknown]
  - Pulmonary embolism [Unknown]
  - Respiratory failure [Unknown]
